FAERS Safety Report 13105642 (Version 2)
Quarter: 2017Q1

REPORT INFORMATION
  Report Type: Report from Study
  Country: GR (occurrence: GR)
  Receive Date: 20170111
  Receipt Date: 20170126
  Transmission Date: 20170428
  Serious: Yes (Death)
  Sender: FDA-Public Use
  Company Number: GR-PFIZER INC-2017009963

PATIENT
  Sex: Female

DRUGS (6)
  1. FLUOROURACIL. [Suspect]
     Active Substance: FLUOROURACIL
     Dosage: 600 MG/M2, UNK ( 22 H I.V. CONTINUOUS INFUSION)
     Route: 042
  2. FLUOROURACIL. [Suspect]
     Active Substance: FLUOROURACIL
     Indication: COLORECTAL CANCER METASTATIC
     Dosage: 400 MG/M2, CYCLIC (D3?, ADMINISTERED EVERY 2 WEEKS )
     Route: 040
  3. CETUXIMAB. [Suspect]
     Active Substance: CETUXIMAB
     Indication: COLORECTAL CANCER METASTATIC
     Dosage: 500 MG/M2, CYCLIC (ADMINISTERED EVERY 2 WEEKS)
  4. CALCIUM FOLINATE [Suspect]
     Active Substance: LEUCOVORIN CALCIUM
     Indication: COLORECTAL CANCER METASTATIC
     Dosage: 200 MG/M2, CYCLIC (D2-3, ADMINISTERED EVERY 2 WEEKS )
  5. IRINOTECAN HCL [Suspect]
     Active Substance: IRINOTECAN HYDROCHLORIDE
     Indication: COLORECTAL CANCER METASTATIC
     Dosage: 150 MG/M2, CYCLIC ( D1,ADMINISTERED EVERY 2 WEEKS)
  6. OXALIPLATIN. [Suspect]
     Active Substance: OXALIPLATIN
     Indication: COLORECTAL CANCER METASTATIC
     Dosage: 65 MG/M2, CYCLIC (D2 ADMINISTERED EVERY 2 WEEKS)

REACTIONS (2)
  - Diarrhoea [Fatal]
  - Sepsis [Fatal]
